FAERS Safety Report 8071464-X (Version None)
Quarter: 2012Q1

REPORT INFORMATION
  Report Type: 
  Country: None (occurrence: None)
  Receive Date: 20120125
  Receipt Date: 20120117
  Transmission Date: 20120608
  Serious: Yes (Hospitalization)
  Sender: FDA-Public Use
  Company Number: BR-BAXTER-2011BH034961

PATIENT
  Age: 6 Year
  Sex: Female
  Weight: 21 kg

DRUGS (4)
  1. DEXTROSE 5% [Suspect]
     Indication: FLUID REPLACEMENT
     Route: 042
     Dates: start: 20111022
  2. DEXTROSE 5% [Suspect]
     Indication: INTRAVENOUS CATHETER MANAGEMENT
     Route: 042
     Dates: start: 20111022
  3. OXACILLIN [Concomitant]
     Indication: PRODUCT USED FOR UNKNOWN INDICATION
     Route: 042
     Dates: start: 20111022, end: 20111031
  4. CEFTRIAXONE [Concomitant]
     Indication: PRODUCT USED FOR UNKNOWN INDICATION
     Route: 042
     Dates: start: 20111022, end: 20111031

REACTIONS (2)
  - PYREXIA [None]
  - TREMOR [None]
